FAERS Safety Report 7763107 (Version 5)
Quarter: 2013Q2

REPORT INFORMATION
  Report Type: Spontaneous
  Country: US (occurrence: US)
  Receive Date: 20110118
  Receipt Date: 20130402
  Transmission Date: 20140414
  Serious: Yes (Other)
  Sender: FDA-Public Use
  Company Number: US-BAYER-2011-004960

PATIENT
  Age: 17 Year
  Sex: Female
  Weight: 104.31 kg

DRUGS (5)
  1. YAZ [Suspect]
     Dosage: UNK
     Route: 048
     Dates: start: 200809, end: 200912
  2. PROZAC [Concomitant]
  3. CAPADEX [Concomitant]
  4. WELLBUTRIN [Concomitant]
  5. KAPIDEX [Concomitant]
     Dosage: 60 MG, EVERY MORNING BEFORE MEALS
     Route: 048
     Dates: start: 20090716

REACTIONS (4)
  - Gallbladder disorder [None]
  - Pain [None]
  - Emotional distress [None]
  - Cholecystitis chronic [None]
